FAERS Safety Report 8047448-4 (Version None)
Quarter: 2012Q1

REPORT INFORMATION
  Report Type: 
  Country: None (occurrence: None)
  Receive Date: 20120116
  Receipt Date: 20120110
  Transmission Date: 20120608
  Serious: Yes (Hospitalization)
  Sender: FDA-Public Use
  Company Number: US-JNJFOC-20120103483

PATIENT
  Sex: Female
  Weight: 66.23 kg

DRUGS (7)
  1. REMICADE [Suspect]
     Indication: CROHN'S DISEASE
     Route: 042
     Dates: start: 20111201, end: 20111201
  2. AZATHIOPRINE [Concomitant]
     Route: 065
     Dates: start: 20110101
  3. RANITIDINE [Concomitant]
     Route: 065
  4. PENTASA [Concomitant]
     Indication: CROHN'S DISEASE
     Route: 065
  5. STEROIDS NOS [Concomitant]
     Route: 065
     Dates: start: 20110901, end: 20111201
  6. AGGRENOX [Concomitant]
     Route: 065
     Dates: start: 20110101
  7. NEXIUM [Concomitant]
     Route: 065

REACTIONS (5)
  - VISUAL IMPAIRMENT [None]
  - CEREBROVASCULAR ACCIDENT [None]
  - DYSACUSIS [None]
  - ARTHROPATHY [None]
  - PAIN IN EXTREMITY [None]
